FAERS Safety Report 7096818-X (Version None)
Quarter: 2010Q4

REPORT INFORMATION
  Report Type: 
  Country: None (occurrence: None)
  Receive Date: 20101111
  Receipt Date: 20101104
  Transmission Date: 20110411
  Serious: Yes (Other)
  Sender: FDA-Public Use
  Company Number: US-PFIZER INC-2010141003

PATIENT
  Sex: Female
  Weight: 60.8 kg

DRUGS (4)
  1. LIPITOR [Suspect]
     Indication: MYOCARDIAL INFARCTION
     Dosage: 80 MG, DAILY
     Route: 048
     Dates: start: 20100801, end: 20101021
  2. LIPITOR [Suspect]
     Indication: STENT PLACEMENT
  3. HYDROCHLOROTHIAZIDE [Concomitant]
     Dosage: 50 MG, UNK
  4. POTASSIUM [Concomitant]
     Dosage: 10 MEQ, UNK

REACTIONS (8)
  - CONFUSIONAL STATE [None]
  - FEELING ABNORMAL [None]
  - GAIT DISTURBANCE [None]
  - HEART RATE IRREGULAR [None]
  - HIGH DENSITY LIPOPROTEIN ABNORMAL [None]
  - MEMORY IMPAIRMENT [None]
  - MUSCLE SPASMS [None]
  - MUSCLE TIGHTNESS [None]
